FAERS Safety Report 15281505 (Version 1)
Quarter: 2018Q3

REPORT INFORMATION
  Report Type: Report from Study
  Country: NO (occurrence: NO)
  Receive Date: 20180815
  Receipt Date: 20180815
  Transmission Date: 20181010
  Serious: Yes (Hospitalization)
  Sender: FDA-Public Use
  Company Number: NO-SAKK-2018SA160062AA

PATIENT
  Age: 57 Year
  Sex: Male

DRUGS (4)
  1. CANDESARTAN. [Concomitant]
     Active Substance: CANDESARTAN
     Dosage: 32 MG, QD
     Route: 048
  2. ALEMTUZUMAB [Suspect]
     Active Substance: ALEMTUZUMAB
     Indication: MULTIPLE SCLEROSIS RELAPSE
     Dosage: 12 UNK
     Route: 041
     Dates: start: 20180529, end: 20180531
  3. ZOVIRAX [ACICLOVIR] [Concomitant]
     Dosage: 200 MG, BID
     Route: 048
     Dates: start: 20180529
  4. ALEMTUZUMAB [Suspect]
     Active Substance: ALEMTUZUMAB
     Dosage: 12 MG, QD
     Route: 041
     Dates: start: 20170529, end: 20170602

REACTIONS (1)
  - Listeriosis [Recovering/Resolving]

NARRATIVE: CASE EVENT DATE: 20180603
